FAERS Safety Report 20913539 (Version 4)
Quarter: 2022Q3

REPORT INFORMATION
  Report Type: Report from Study
  Country: US (occurrence: US)
  Receive Date: 20220604
  Receipt Date: 20220817
  Transmission Date: 20221027
  Serious: No
  Sender: FDA-Public Use
  Company Number: US-NOVARTISTESTPH-NVSC2022US128614

PATIENT
  Sex: Female

DRUGS (1)
  1. ILARIS [Suspect]
     Active Substance: CANAKINUMAB
     Indication: Pyrexia
     Dosage: 150 MG, Q 8 WEEKS
     Route: 058
     Dates: start: 20220213

REACTIONS (3)
  - SARS-CoV-2 test positive [Unknown]
  - Product use in unapproved indication [Unknown]
  - Drug ineffective [Unknown]
